FAERS Safety Report 8118581-3 (Version None)
Quarter: 2012Q1

REPORT INFORMATION
  Report Type: 
  Country: None (occurrence: None)
  Receive Date: 20120207
  Receipt Date: 20120130
  Transmission Date: 20120608
  Serious: Yes (Death, Other)
  Sender: FDA-Public Use
  Company Number: CA-PFIZER INC-2012026137

PATIENT
  Age: 22 Year
  Sex: Female

DRUGS (8)
  1. VINCRISTINE SULFATE [Concomitant]
     Dosage: UNK, DAILY
  2. TIOGUANINE [Concomitant]
  3. METHOTREXATE [Concomitant]
  4. PREDNISONE TAB [Suspect]
     Indication: ACUTE LYMPHOCYTIC LEUKAEMIA
     Dosage: 65.0 MG, UNK
     Route: 048
  5. CYTARABINE [Suspect]
     Indication: ACUTE LYMPHOCYTIC LEUKAEMIA
     Route: 042
  6. ELSPAR [Concomitant]
  7. DAUNORUBICIN [Concomitant]
  8. MERCAPTOPURINE [Concomitant]

REACTIONS (5)
  - METABOLIC ACIDOSIS [None]
  - DISSEMINATED INTRAVASCULAR COAGULATION [None]
  - NEUTROPENIC SEPSIS [None]
  - INTERSTITIAL LUNG DISEASE [None]
  - STAPHYLOCOCCAL SEPSIS [None]
